FAERS Safety Report 8586204-5 (Version None)
Quarter: 2012Q3

REPORT INFORMATION
  Report Type: 
  Country: None (occurrence: None)
  Receive Date: 20120810
  Receipt Date: 20120801
  Transmission Date: 20120928
  Serious: Yes (Other)
  Sender: FDA-Public Use
  Company Number: AU-GLAXOSMITHKLINE-B0821786A

PATIENT
  Sex: Male

DRUGS (4)
  1. ACETAMINOPHEN [Concomitant]
  2. PERINDOPRIL ERBUMINE [Concomitant]
     Dosage: 5MG PER DAY
  3. CELEBREX [Concomitant]
  4. FLIXOTIDE ACCUHALER [Suspect]
     Indication: ASTHMA
     Dosage: 1PUFF TWICE PER DAY
     Route: 055
     Dates: start: 20120407

REACTIONS (4)
  - DRUG INEFFECTIVE [None]
  - PRODUCT QUALITY ISSUE [None]
  - ASTHMA [None]
  - DYSPNOEA [None]
